FAERS Safety Report 8066109-9 (Version None)
Quarter: 2012Q1

REPORT INFORMATION
  Report Type: 
  Country: None (occurrence: None)
  Receive Date: 20120124
  Receipt Date: 20120116
  Transmission Date: 20120608
  Serious: Yes (Hospitalization)
  Sender: FDA-Public Use
  Company Number: JP-ROCHE-1019619

PATIENT
  Sex: Female

DRUGS (11)
  1. LAC-B [Concomitant]
     Route: 048
  2. RIMATIL [Concomitant]
     Route: 048
  3. BISOPROLOL FUMARATE [Concomitant]
     Route: 048
  4. CYTOTEC [Concomitant]
     Dosage: AMOUNT 4
     Route: 048
  5. ACTEMRA [Suspect]
     Indication: RHEUMATOID ARTHRITIS
     Route: 041
     Dates: start: 20110426, end: 20111201
  6. MAGNESIUM OXIDE [Concomitant]
     Dosage: AMOUNT 3
     Route: 048
  7. MOTILIUM [Concomitant]
     Dosage: AMOUNT 3
     Route: 048
  8. FAMOTIDINE [Concomitant]
     Route: 048
  9. GASCON [Concomitant]
     Dosage: AMOUNT 3
     Route: 048
  10. PREDNISOLONE [Concomitant]
     Route: 048
  11. MOBIC [Concomitant]
     Route: 048

REACTIONS (2)
  - DIARRHOEA [None]
  - VOMITING [None]
